FAERS Safety Report 9784571 (Version 6)
Quarter: 2014Q3

REPORT INFORMATION
  Report Type: Report from Study
  Country: US (occurrence: US)
  Receive Date: 20131226
  Receipt Date: 20140710
  Transmission Date: 20150326
  Serious: Yes (Death, Hospitalization)
  Sender: FDA-Public Use
  Company Number: US-ACTELION-A-NJ2013-92487

PATIENT
  Age: 62 Year
  Sex: Female

DRUGS (7)
  1. TRACLEER [Suspect]
     Active Substance: BOSENTAN\BOSENTAN MONOHYDRATE
     Indication: PULMONARY ARTERIAL HYPERTENSION
     Dosage: 125 MG, BID
     Route: 048
     Dates: start: 201107, end: 20140606
  2. VELETRI [Suspect]
     Active Substance: EPOPROSTENOL
     Indication: PULMONARY ARTERIAL HYPERTENSION
     Dosage: 13 NG/KG, PER MIN
     Route: 042
     Dates: start: 20131113
  3. VELETRI [Suspect]
     Active Substance: EPOPROSTENOL
     Dosage: 7 NG/KG, PER MIN
     Route: 042
  4. REVATIO [Concomitant]
     Active Substance: SILDENAFIL CITRATE
  5. ALDACTONE [Concomitant]
     Active Substance: SPIRONOLACTONE
     Dosage: 25 MG, UNK
  6. TYVASO [Concomitant]
     Active Substance: TREPROSTINIL
  7. LASIX [Concomitant]
     Active Substance: FUROSEMIDE
     Dosage: 40 MG, UNK

REACTIONS (15)
  - Fluid retention [Unknown]
  - Cardiac failure [Fatal]
  - Asthenia [Unknown]
  - Swelling [Unknown]
  - Pulmonary oedema [Recovered/Resolved]
  - Nausea [Recovering/Resolving]
  - Hypoxia [Unknown]
  - Diarrhoea [Recovering/Resolving]
  - Respiratory arrest [Fatal]
  - Dyspnoea [Fatal]
  - Peripheral swelling [Unknown]
  - Pulmonary veno-occlusive disease [Fatal]
  - Diet noncompliance [Unknown]
  - Oedema peripheral [Unknown]
  - Pulmonary hypertension [Fatal]

NARRATIVE: CASE EVENT DATE: 20131215
